FAERS Safety Report 23803645 (Version 1)
Quarter: 2024Q2

REPORT INFORMATION
  Report Type: Report from Study
  Country: US (occurrence: US)
  Receive Date: 20240501
  Receipt Date: 20240501
  Transmission Date: 20240716
  Serious: Yes (Hospitalization)
  Sender: FDA-Public Use
  Company Number: US-SA-SAC20240426001372

PATIENT
  Age: 55 Day
  Sex: Female
  Weight: 2.83 kg

DRUGS (1)
  1. DUPILUMAB [Suspect]
     Active Substance: DUPILUMAB
     Indication: Asthma
     Dosage: 300 MG, BIM
     Route: 064
     Dates: start: 20190701, end: 20220526

REACTIONS (7)
  - Respiratory syncytial virus infection [Unknown]
  - Weight gain poor [Unknown]
  - Malnutrition [Unknown]
  - Renal dysplasia [Unknown]
  - Vesicoureteric reflux [Unknown]
  - Laryngomalacia [Unknown]
  - Foetal exposure timing unspecified [Unknown]

NARRATIVE: CASE EVENT DATE: 20210907
